FAERS Safety Report 6333371-X (Version None)
Quarter: 2009Q3

REPORT INFORMATION
  Report Type: 
  Country: None (occurrence: None)
  Receive Date: 20090828
  Receipt Date: 20090805
  Transmission Date: 20100115
  Serious: Yes (Hospitalization)
  Sender: FDA-Public Use
  Company Number: GB-ALLERGAN-0911534US

PATIENT
  Sex: Female

DRUGS (3)
  1. BOTULINUM TOXIN TYPE A [Suspect]
     Indication: HYPERTONIC BLADDER
     Dosage: 200 UNK, UNK
     Route: 030
  2. BLINDED PLACEBO [Suspect]
     Indication: HYPERTONIC BLADDER
     Dosage: 200 UNK, UNK
     Route: 030
  3. BOTOX [Suspect]
     Indication: HYPERTONIC BLADDER
     Dosage: 200 UNITS, SINGLE
     Route: 030
     Dates: start: 20070811, end: 20070811

REACTIONS (2)
  - STRESS URINARY INCONTINENCE [None]
  - VAGINAL PROLAPSE [None]
